FAERS Safety Report 19460396 (Version 1)
Quarter: 2021Q2

REPORT INFORMATION
  Report Type: Other
  Country: TN (occurrence: TN)
  Receive Date: 20210625
  Receipt Date: 20210625
  Transmission Date: 20210717
  Serious: Yes (Other)
  Sender: FDA-Public Use
  Company Number: TN-ROCHE-2854967

PATIENT

DRUGS (4)
  1. MYCOPHENOLATE MOFETIL. [Suspect]
     Active Substance: MYCOPHENOLATE MOFETIL
     Indication: SYSTEMIC LUPUS ERYTHEMATOSUS
     Route: 065
  2. METHOTREXATE. [Suspect]
     Active Substance: METHOTREXATE
     Indication: SYSTEMIC LUPUS ERYTHEMATOSUS
     Route: 065
  3. AZATHIOPRINE. [Suspect]
     Active Substance: AZATHIOPRINE
     Indication: SYSTEMIC LUPUS ERYTHEMATOSUS
     Route: 065
  4. CYCLOPHOSPHAMIDE. [Suspect]
     Active Substance: CYCLOPHOSPHAMIDE
     Indication: SYSTEMIC LUPUS ERYTHEMATOSUS
     Route: 065

REACTIONS (25)
  - Meningitis [Unknown]
  - Hepatitis B [Unknown]
  - Gastrointestinal infection [Unknown]
  - Escherichia urinary tract infection [Unknown]
  - Oesophageal candidiasis [Unknown]
  - Arthritis salmonella [Unknown]
  - Cytomegalovirus colitis [Unknown]
  - Tuberculosis [Unknown]
  - Salmonellosis [Unknown]
  - Urinary tract infection bacterial [Unknown]
  - Sepsis [Unknown]
  - Skin bacterial infection [Unknown]
  - Genitourinary chlamydia infection [Unknown]
  - Skin infection [Unknown]
  - Meningitis tuberculous [Unknown]
  - Arthritis infective [Unknown]
  - Diarrhoea infectious [Unknown]
  - Oral candidiasis [Unknown]
  - Off label use [Unknown]
  - Urinary tract infection [Unknown]
  - Pneumonia [Unknown]
  - Cytomegalovirus infection [Unknown]
  - Tuberculosis of genitourinary system [Unknown]
  - Urinary tract infection enterococcal [Unknown]
  - Acinetobacter infection [Unknown]
